FAERS Safety Report 6737834-4 (Version None)
Quarter: 2010Q2

REPORT INFORMATION
  Report Type: 
  Country: None (occurrence: None)
  Receive Date: 20100524
  Receipt Date: 20100423
  Transmission Date: 20101027
  Serious: No
  Sender: FDA-Public Use
  Company Number: US-BAYER-201022178NA

PATIENT
  Age: 56 Year
  Sex: Female
  Weight: 87 kg

DRUGS (1)
  1. MAGNEVIST [Suspect]
     Indication: NUCLEAR MAGNETIC RESONANCE IMAGING BRAIN
     Dosage: TOTAL DAILY DOSE: 18 ML
     Route: 042
     Dates: start: 20100422, end: 20100422

REACTIONS (2)
  - ERYTHEMA [None]
  - PRURITUS [None]
